FAERS Safety Report 4305725-4 (Version None)
Quarter: 2004Q1

REPORT INFORMATION
  Report Type: 
  Country: None (occurrence: None)
  Receive Date: 20040225
  Receipt Date: 20040213
  Transmission Date: 20041129
  Serious: Yes (Hospitalization, Other)
  Sender: FDA-Public Use
  Company Number: HQWYE998913FEB04

PATIENT
  Age: 79 Year
  Sex: Male

DRUGS (6)
  1. CORDARONE [Suspect]
     Dosage: 200 MG DAILY, 5 TIMES PER WEEK ORAL
     Route: 048
     Dates: end: 20000621
  2. ALDACTONE [Suspect]
     Dosage: 50 MG 1X PER 1 DAY ORAL
     Route: 048
     Dates: end: 20000621
  3. LIPANTHYL-SLOW RELEASE (FENOFIBRATE) [Suspect]
     Dosage: 200 MG 1X PER 1 DAY ORAL
     Route: 048
     Dates: end: 20000621
  4. PREVISCAN (FLUINDIONE) [Concomitant]
     Dosage: 25 MG 1X PER 1 DAY ORAL
     Route: 048
     Dates: end: 20000621
  5. ZESTORETIC [Suspect]
     Dosage: 32.5 MG 1X PER 1 DAY ORAL
     Route: 048
     Dates: end: 20000621
  6. CALCIPARINE ^DIFREX^ (HEPARIN CALCIUM) [Concomitant]

REACTIONS (1)
  - RENAL FAILURE ACUTE [None]
